FAERS Safety Report 7919939 (Version 9)
Quarter: 2014Q2

REPORT INFORMATION
  Report Type: Spontaneous
  Country: US (occurrence: US)
  Receive Date: 20110429
  Receipt Date: 20140516
  Transmission Date: 20141212
  Serious: Yes (Hospitalization, Other)
  Sender: FDA-Public Use
  Company Number: US-PFIZER INC-2011089663

PATIENT
  Age: 64 Year
  Sex: Female

DRUGS (28)
  1. PROTONIX [Suspect]
     Indication: PRODUCT USED FOR UNKNOWN INDICATION
     Dosage: UNK
     Route: 065
  2. SKELAXIN [Suspect]
     Dosage: UNK
     Route: 065
  3. TOBI [Suspect]
     Dosage: 300 MG/5ML ONE AMPOULE, BID 28 DAYS ON AND 28 DAYS OFF
     Route: 055
     Dates: start: 2001
  4. SULFAMETHOXAZOLE [Suspect]
     Dosage: UNK
     Route: 065
  5. VIOXX [Suspect]
     Dosage: UNK
     Route: 065
  6. QVAR [Concomitant]
  7. DUONEB [Concomitant]
  8. ALBUTEROL [Concomitant]
  9. XOPENEX [Concomitant]
  10. THEOPHYLLINE [Concomitant]
  11. ASTELIN [Concomitant]
  12. DIPHENHYDRAMINE [Concomitant]
  13. MISOPROSTOL [Concomitant]
  14. FLEXERIL [Concomitant]
  15. NAPROXEN [Concomitant]
  16. AXOTAL (OLD FORM) [Concomitant]
  17. ACIPHEX [Concomitant]
  18. BONIVA [Concomitant]
     Dosage: UNK
  19. PATANOL [Concomitant]
  20. VITAMIN D [Concomitant]
     Dosage: 2000 IU, UNK
  21. VITAMIN E [Concomitant]
     Dosage: 400 GY.
  22. VITAMIN C [Concomitant]
     Dosage: 1000 MG, UNK
  23. IRON [Concomitant]
  24. ACIDOPHILUS ^ZYMA^ [Concomitant]
  25. ALPHA LIPOIC ACID [Concomitant]
  26. CALCIUM [Concomitant]
  27. MAGNESIUM [Concomitant]
  28. PREDNISONE [Concomitant]
     Dosage: UNK
     Route: 065

REACTIONS (15)
  - Gastric ulcer [Unknown]
  - Cerebrovascular accident [Unknown]
  - Muscle spasms [Unknown]
  - Anaemia [Recovering/Resolving]
  - Amnesia [Unknown]
  - Myocardial infarction [Unknown]
  - Aphasia [Unknown]
  - Nausea [Unknown]
  - Tinnitus [Unknown]
  - Abdominal pain upper [Unknown]
  - Insomnia [Unknown]
  - Urticaria [Unknown]
  - Fatigue [Unknown]
  - Dyspnoea [Unknown]
  - Confusional state [Unknown]
